FAERS Safety Report 11941810 (Version 1)
Quarter: 2016Q1

REPORT INFORMATION
  Report Type: Spontaneous
  Country: US (occurrence: US)
  Receive Date: 20160123
  Receipt Date: 20160123
  Transmission Date: 20160526
  Serious: Yes (Other)
  Sender: FDA-Public Use
  Company Number: US-REGENERON PHARMACEUTICALS, INC.-2015-14759

PATIENT

DRUGS (3)
  1. EYLEA [Suspect]
     Active Substance: AFLIBERCEPT
     Indication: RETINAL VEIN OCCLUSION
  2. EYLEA [Suspect]
     Active Substance: AFLIBERCEPT
     Indication: CYSTOID MACULAR OEDEMA
     Dosage: 4 MG MILLIGRAM(S),EVERY 4-5 WEEKS LEFT EYE
     Route: 031
     Dates: start: 20140814
  3. METFORMIN [Concomitant]
     Active Substance: METFORMIN HYDROCHLORIDE
     Dosage: 500 MG MILLIGRAM(S), UNK

REACTIONS (2)
  - Open angle glaucoma [Recovered/Resolved]
  - Incorrect dose administered [Unknown]

NARRATIVE: CASE EVENT DATE: 20140814
